FAERS Safety Report 10082763 (Version 1)
Quarter: 2014Q2

REPORT INFORMATION
  Report Type: Spontaneous
  Country: FR (occurrence: FR)
  Receive Date: 20140416
  Receipt Date: 20140416
  Transmission Date: 20141212
  Serious: Yes (Death, Other)
  Sender: FDA-Public Use
  Company Number: FR-GILEAD-2014-0099641

PATIENT
  Sex: Male
  Weight: .41 kg

DRUGS (3)
  1. ATRIPLA [Suspect]
     Indication: HIV INFECTION
     Dosage: UNK
     Route: 064
     Dates: start: 20120515, end: 20120608
  2. COMBIVIR [Concomitant]
     Indication: HIV INFECTION
     Dosage: UNK
     Route: 064
     Dates: start: 20120608, end: 20120919
  3. KALETRA [Concomitant]
     Indication: HIV INFECTION
     Dosage: UNK
     Route: 064
     Dates: start: 20120608, end: 20120919

REACTIONS (2)
  - Heart disease congenital [Fatal]
  - Dysmorphism [Fatal]
